FAERS Safety Report 4481246-3 (Version None)
Quarter: 2004Q4

REPORT INFORMATION
  Report Type: 
  Country: None (occurrence: None)
  Receive Date: 20040923
  Receipt Date: 20040706
  Transmission Date: 20050328
  Serious: No
  Sender: FDA-Public Use
  Company Number: USA030229771

PATIENT
  Age: 74 Year
  Sex: Female
  Weight: 45 kg

DRUGS (3)
  1. FORTEO [Suspect]
     Dates: start: 20030104
  2. EVISTA [Suspect]
  3. FOSAMAX [Concomitant]

REACTIONS (7)
  - ASTHENIA [None]
  - BONE PAIN [None]
  - FEELING ABNORMAL [None]
  - FLATULENCE [None]
  - INSOMNIA [None]
  - MYALGIA [None]
  - PAIN IN EXTREMITY [None]
